FAERS Safety Report 22308847 (Version 2)
Quarter: 2023Q2

REPORT INFORMATION
  Report Type: Report from Study
  Country: FR (occurrence: FR)
  Receive Date: 20230511
  Receipt Date: 20230529
  Transmission Date: 20230722
  Serious: No
  Sender: FDA-Public Use
  Company Number: FR-ROCHE-3341637

PATIENT
  Age: 63 Year
  Sex: Male
  Weight: 88.5 kg

DRUGS (7)
  1. RITUXIMAB [Suspect]
     Active Substance: RITUXIMAB
     Indication: Follicular lymphoma
     Dosage: 375 MG/M2, WEEKLY
     Route: 042
     Dates: start: 20230302
  2. EPCORITAMAB [Suspect]
     Active Substance: EPCORITAMAB
     Indication: Follicular lymphoma
     Dosage: 0.16 MG, WEEKLY
     Route: 058
     Dates: start: 20230302, end: 20230302
  3. EPCORITAMAB [Suspect]
     Active Substance: EPCORITAMAB
     Dosage: 0.8 MG, WEEKLY
     Route: 058
     Dates: start: 20230309, end: 20230309
  4. EPCORITAMAB [Suspect]
     Active Substance: EPCORITAMAB
     Dosage: 48 MG, WEEKLY
     Route: 058
     Dates: start: 20230316
  5. LENALIDOMIDE [Suspect]
     Active Substance: LENALIDOMIDE
     Indication: Follicular lymphoma
     Dosage: 20 MG, 1X/DAY
     Route: 048
     Dates: start: 20230302, end: 20230322
  6. LENALIDOMIDE [Suspect]
     Active Substance: LENALIDOMIDE
     Dosage: 20 MG, 1X/DAY
     Route: 048
     Dates: start: 20230330
  7. PREDNISONE [Concomitant]
     Active Substance: PREDNISONE
     Dosage: FREQ:4 WK;
     Dates: start: 20230302, end: 20230326

REACTIONS (1)
  - Neoplasm progression [Recovered/Resolved]

NARRATIVE: CASE EVENT DATE: 20230322
